FAERS Safety Report 26074316 (Version 1)
Quarter: 2025Q4

REPORT INFORMATION
  Report Type: Report from Study
  Country: US (occurrence: US)
  Receive Date: 20251121
  Receipt Date: 20251121
  Transmission Date: 20260117
  Serious: Yes (Other)
  Sender: TAKEDA
  Company Number: US-TAKEDA-2025TUS102487

PATIENT
  Age: 83 Year
  Sex: Male

DRUGS (1)
  1. VEDOLIZUMAB [Suspect]
     Active Substance: VEDOLIZUMAB
     Indication: Colitis ulcerative
     Dosage: 300 MILLIGRAM

REACTIONS (14)
  - Deep vein thrombosis [Unknown]
  - Atrial fibrillation [Unknown]
  - Chronic kidney disease [Unknown]
  - Arteriosclerosis coronary artery [Unknown]
  - Type 2 diabetes mellitus [Unknown]
  - Prostate cancer [Unknown]
  - Lung neoplasm malignant [Unknown]
  - Peripheral venous disease [Unknown]
  - Bundle branch block right [Unknown]
  - Hyperlipidaemia [Unknown]
  - Supraventricular extrasystoles [Unknown]
  - Chronic obstructive pulmonary disease [Unknown]
  - Hypertension [Unknown]
  - Pain in extremity [Unknown]
